FAERS Safety Report 13622466 (Version 1)
Quarter: 2017Q2

REPORT INFORMATION
  Report Type: Spontaneous
  Country: US (occurrence: US)
  Receive Date: 20170607
  Receipt Date: 20170607
  Transmission Date: 20170830
  Serious: No
  Sender: FDA-Public Use
  Company Number: US-ROCHE-1008514

PATIENT
  Sex: Male
  Weight: 73.55 kg

DRUGS (11)
  1. FUZEON [Suspect]
     Active Substance: ENFUVIRTIDE
     Indication: HIV INFECTION
     Route: 058
     Dates: start: 2003
  2. BACTRIM [Concomitant]
     Active Substance: SULFAMETHOXAZOLE\TRIMETHOPRIM
     Route: 065
     Dates: start: 2003
  3. NORVIR [Concomitant]
     Active Substance: RITONAVIR
     Route: 065
     Dates: start: 2003
  4. ZIAGEN [Concomitant]
     Active Substance: ABACAVIR SULFATE
     Route: 065
     Dates: start: 2003
  5. TRUVADA [Concomitant]
     Active Substance: EMTRICITABINE\TENOFOVIR DISOPROXIL FUMARATE
     Route: 065
     Dates: start: 2003
  6. ACYCLOVIR. [Concomitant]
     Active Substance: ACYCLOVIR
     Route: 065
     Dates: start: 2003
  7. NIASPAN [Concomitant]
     Active Substance: NIACIN
     Route: 065
     Dates: start: 2010
  8. LOVAZA [Concomitant]
     Active Substance: OMEGA-3-ACID ETHYL ESTERS
     Route: 065
     Dates: start: 2010
  9. PREZISTA [Concomitant]
     Active Substance: DARUNAVIR ETHANOLATE
     Route: 065
     Dates: start: 2003
  10. ACTOS [Concomitant]
     Active Substance: PIOGLITAZONE HYDROCHLORIDE
     Route: 065
     Dates: start: 2003
  11. CRESTOR [Concomitant]
     Active Substance: ROSUVASTATIN CALCIUM
     Route: 065
     Dates: start: 2005

REACTIONS (2)
  - Skin mass [Unknown]
  - Impaired healing [Unknown]

NARRATIVE: CASE EVENT DATE: 2011
